FAERS Safety Report 10368170 (Version 1)
Quarter: 2014Q3

REPORT INFORMATION
  Report Type: Spontaneous
  Country: US (occurrence: US)
  Receive Date: 20140807
  Receipt Date: 20140807
  Transmission Date: 20150326
  Serious: Yes (Hospitalization)
  Sender: FDA-Public Use
  Company Number: US-SA-2014SA103267

PATIENT
  Sex: Male

DRUGS (2)
  1. LANTUS SOLOSTAR [Suspect]
     Active Substance: INSULIN GLARGINE
     Indication: PRODUCT USED FOR UNKNOWN INDICATION
     Dosage: DOSE: 35 UNITS UNSPECIFIED
     Route: 065
  2. SOLOSTAR [Concomitant]
     Active Substance: DEVICE
     Dosage: DOSAGE: 35 UNITS NOT SPECIFIED
     Route: 065

REACTIONS (1)
  - Nervous system disorder [Unknown]
